FAERS Safety Report 8978332 (Version 2)
Quarter: 2013Q1

REPORT INFORMATION
  Report Type: Spontaneous
  Country: GB (occurrence: GB)
  Receive Date: 20121221
  Receipt Date: 20130121
  Transmission Date: 20140127
  Serious: Yes (Other)
  Sender: FDA-Public Use
  Company Number: GB-RANBAXY-2012R1-63250

PATIENT
  Sex: Male

DRUGS (2)
  1. CODEINE [Suspect]
     Indication: DIARRHOEA
     Dosage: 15 MG, QID
     Route: 065
  2. LOPERAMIDE [Concomitant]
     Indication: DIARRHOEA
     Dosage: UNK
     Route: 065

REACTIONS (1)
  - No adverse event [Unknown]
